FAERS Safety Report 6528589-7 (Version None)
Quarter: 2010Q1

REPORT INFORMATION
  Report Type: 
  Country: None (occurrence: None)
  Receive Date: 20100106
  Receipt Date: 20091228
  Transmission Date: 20100710
  Serious: Yes (Other)
  Sender: FDA-Public Use
  Company Number: US-ASTRAZENECA-2009UW21335

PATIENT
  Age: 747 Month
  Sex: Male
  Weight: 111.1 kg

DRUGS (11)
  1. SEROQUEL [Suspect]
     Indication: SLEEP DISORDER
     Route: 048
     Dates: start: 20081201, end: 20090214
  2. SEROQUEL [Suspect]
     Route: 048
  3. ZOLOFT [Concomitant]
  4. XANAX [Concomitant]
     Indication: ANXIETY
  5. XANAX [Concomitant]
     Indication: SLEEP DISORDER
  6. GLIPIZIDE [Concomitant]
  7. LISINOPRIL [Concomitant]
  8. ATENOLOL [Concomitant]
  9. SIMVASTATIN [Concomitant]
  10. ASPIRIN [Concomitant]
  11. DOCUSATE [Concomitant]

REACTIONS (7)
  - AGGRESSION [None]
  - DISORIENTATION [None]
  - FEELING ABNORMAL [None]
  - HALLUCINATION [None]
  - PHYSICAL ASSAULT [None]
  - PSYCHOTIC DISORDER [None]
  - WRONG TECHNIQUE IN DRUG USAGE PROCESS [None]
